FAERS Safety Report 5518072-X (Version None)
Quarter: 2007Q4

REPORT INFORMATION
  Report Type: 
  Country: None (occurrence: None)
  Receive Date: 20071115
  Receipt Date: 20071101
  Transmission Date: 20080405
  Serious: Yes (Hospitalization, Disabling, Other)
  Sender: FDA-Public Use
  Company Number: US-ELI_LILLY_AND_COMPANY-US200711000392

PATIENT
  Sex: Female

DRUGS (1)
  1. FORTEO [Suspect]

REACTIONS (6)
  - BACK INJURY [None]
  - CEREBROVASCULAR ACCIDENT [None]
  - FALL [None]
  - HOSPITALISATION [None]
  - IMPAIRED WORK ABILITY [None]
  - PNEUMONIA [None]
